FAERS Safety Report 24533215 (Version 1)
Quarter: 2024Q4

REPORT INFORMATION
  Report Type: Other
  Country: US (occurrence: US)
  Receive Date: 20241022
  Receipt Date: 20241022
  Transmission Date: 20250115
  Serious: Yes (Life-Threatening, Hospitalization, Other)
  Sender: COREPHARMA LLC
  Company Number: US-CorePharma LLC-2163527

PATIENT
  Age: 59 Year
  Sex: Female

DRUGS (6)
  1. AMLODIPINE BESYLATE [Suspect]
     Active Substance: AMLODIPINE BESYLATE
     Indication: Product used for unknown indication
  2. CARVEDILOL [Suspect]
     Active Substance: CARVEDILOL
  3. CLONIDINE [Suspect]
     Active Substance: CLONIDINE
  4. ALPRAZOLAM [Suspect]
     Active Substance: ALPRAZOLAM
  5. TRAMADOL [Suspect]
     Active Substance: TRAMADOL
  6. CARISOPRODOL [Suspect]
     Active Substance: CARISOPRODOL

REACTIONS (2)
  - Shock [Recovered/Resolved]
  - Intentional overdose [Unknown]
